FAERS Safety Report 12431153 (Version 5)
Quarter: 2016Q4

REPORT INFORMATION
  Report Type: Spontaneous
  Country: US (occurrence: US)
  Receive Date: 20160603
  Receipt Date: 20161118
  Transmission Date: 20170207
  Serious: Yes (Other)
  Sender: FDA-Public Use
  Company Number: US-ASTRAZENECA-2016SE56193

PATIENT
  Age: 27731 Day
  Sex: Female

DRUGS (9)
  1. LOVASTATIN. [Concomitant]
     Active Substance: LOVASTATIN
     Dosage: 40.0MG UNKNOWN
     Route: 065
  2. LYRICA [Concomitant]
     Active Substance: PREGABALIN
  3. VITAMIN D3 [Concomitant]
     Active Substance: CHOLECALCIFEROL
  4. TAGRISSO [Suspect]
     Active Substance: OSIMERTINIB
     Indication: NON-SMALL CELL LUNG CANCER
     Route: 048
     Dates: start: 20160511
  5. GABAPENTIN. [Concomitant]
     Active Substance: GABAPENTIN
     Dosage: 300.0MG UNKNOWN
     Route: 065
  6. BIOTIN [Concomitant]
     Active Substance: BIOTIN
  7. PERCOCET [Concomitant]
     Active Substance: ACETAMINOPHEN\OXYCODONE HYDROCHLORIDE
  8. TAGRISSO [Suspect]
     Active Substance: OSIMERTINIB
     Indication: NON-SMALL CELL LUNG CANCER
     Route: 048
     Dates: start: 20160523
  9. CLOBETASOL [Concomitant]
     Active Substance: CLOBETASOL

REACTIONS (16)
  - Neuralgia [Unknown]
  - Malignant neoplasm progression [Unknown]
  - Pollakiuria [Unknown]
  - Oropharyngeal pain [Unknown]
  - Pruritus [Unknown]
  - Skin disorder [Unknown]
  - Weight decreased [Unknown]
  - Lip dry [Unknown]
  - Drug dose omission [Unknown]
  - Dizziness [Unknown]
  - Lip swelling [Unknown]
  - Chapped lips [Unknown]
  - Rash [Unknown]
  - Urticaria [Unknown]
  - Early satiety [Unknown]
  - Diarrhoea [Recovered/Resolved]

NARRATIVE: CASE EVENT DATE: 20160530
